FAERS Safety Report 11931677 (Version 3)
Quarter: 2016Q1

REPORT INFORMATION
  Report Type: Spontaneous
  Country: GB (occurrence: GB)
  Receive Date: 20160120
  Receipt Date: 20160324
  Transmission Date: 20160526
  Serious: Yes (Death, Hospitalization)
  Sender: FDA-Public Use
  Company Number: GB-SA-2016SA009407

PATIENT
  Sex: Male

DRUGS (3)
  1. NOVORAPID [Suspect]
     Active Substance: INSULIN ASPART
     Indication: INTENTIONAL PRODUCT MISUSE
     Dosage: 200 TO 250 ML
     Route: 065
     Dates: start: 20151114
  2. LANTUS [Suspect]
     Active Substance: INSULIN GLARGINE
     Indication: INTENTIONAL PRODUCT MISUSE
     Dosage: UNK
     Route: 065
  3. NOVOPEN [Concomitant]
     Active Substance: INSULIN HUMAN

REACTIONS (2)
  - Intentional overdose [Fatal]
  - Intentional product misuse [Unknown]

NARRATIVE: CASE EVENT DATE: 20151114
